FAERS Safety Report 9361120 (Version 1)
Quarter: 2013Q2

REPORT INFORMATION
  Report Type: Spontaneous
  Country: JP (occurrence: JP)
  Receive Date: 20130621
  Receipt Date: 20130621
  Transmission Date: 20140414
  Serious: Yes (Hospitalization)
  Sender: FDA-Public Use
  Company Number: JP-SANOFI-AVENTIS-2013SA060160

PATIENT
  Age: 65 Year
  Sex: Female

DRUGS (2)
  1. DOCETAXEL [Suspect]
     Indication: BREAST CANCER
     Route: 065
  2. THERAPEUTIC RADIOPHARMACEUTICALS [Concomitant]
     Indication: BREAST CANCER
     Dosage: UNDERGONE RADIOTHERAPY A TOTAL OF 30 TIMES BETWEEN JAN-MAR OF YEAR X+1

REACTIONS (8)
  - Tumour lysis syndrome [Recovering/Resolving]
  - Tachycardia [Recovering/Resolving]
  - Hypoaesthesia [Recovering/Resolving]
  - Aspartate aminotransferase increased [Recovered/Resolved]
  - Alanine aminotransferase increased [Recovered/Resolved]
  - Blood lactate dehydrogenase increased [Recovered/Resolved]
  - Blood alkaline phosphatase increased [Recovering/Resolving]
  - Gamma-glutamyltransferase increased [Recovered/Resolved]
